FAERS Safety Report 7455702-X (Version None)
Quarter: 2011Q2

REPORT INFORMATION
  Report Type: 
  Country: None (occurrence: None)
  Receive Date: 20110503
  Receipt Date: 20110421
  Transmission Date: 20111010
  Serious: Yes (Hospitalization, Other)
  Sender: FDA-Public Use
  Company Number: US-ASTRAZENECA-2011SE21874

PATIENT
  Age: 53 Year
  Sex: Female

DRUGS (1)
  1. NEXIUM [Suspect]
     Route: 048

REACTIONS (8)
  - NEOPLASM MALIGNANT [None]
  - CARDIAC OPERATION [None]
  - DRUG DOSE OMISSION [None]
  - ABDOMINAL PAIN UPPER [None]
  - ULCER HAEMORRHAGE [None]
  - TUMOUR EXCISION [None]
  - HEART VALVE REPLACEMENT [None]
  - ABDOMINAL DISCOMFORT [None]
